FAERS Safety Report 23578836 (Version 1)
Quarter: 2024Q1

REPORT INFORMATION
  Report Type: Spontaneous
  Country: US (occurrence: US)
  Receive Date: 20240229
  Receipt Date: 20240229
  Transmission Date: 20240409
  Serious: No
  Sender: FDA-Public Use
  Company Number: US-SLATERUN-2024SRSPO00008

PATIENT

DRUGS (1)
  1. PROMETHAZINE DM ORAL SOLUTION [Suspect]
     Active Substance: ALCOHOL\DEXTROMETHORPHAN HYDROBROMIDE\PROMETHAZINE HYDROCHLORIDE
     Indication: Product used for unknown indication
     Dosage: HALF A TEASPOON PER DAY
     Route: 048

REACTIONS (4)
  - Retching [Unknown]
  - Nausea [Unknown]
  - Product taste abnormal [Unknown]
  - Intentional underdose [Unknown]
